FAERS Safety Report 21633627 (Version 8)
Quarter: 2024Q1

REPORT INFORMATION
  Report Type: Spontaneous
  Country: US (occurrence: US)
  Receive Date: 20221123
  Receipt Date: 20240308
  Transmission Date: 20240409
  Serious: Yes (Hospitalization, Other)
  Sender: FDA-Public Use
  Company Number: US-PFIZER INC-PV202200108768

PATIENT
  Age: 84 Year
  Sex: Female

DRUGS (1)
  1. IBRANCE [Suspect]
     Active Substance: PALBOCICLIB
     Indication: Breast cancer metastatic
     Dosage: 125 MG
     Dates: start: 20230206

REACTIONS (19)
  - Ankle fracture [Unknown]
  - Hip fracture [Unknown]
  - Foot fracture [Unknown]
  - Femur fracture [Unknown]
  - Loss of consciousness [Unknown]
  - Diabetes mellitus [Unknown]
  - Rheumatoid arthritis [Unknown]
  - Limb operation [Unknown]
  - Neoplasm progression [Recovering/Resolving]
  - Irritable bowel syndrome [Unknown]
  - Fall [Unknown]
  - Memory impairment [Unknown]
  - Movement disorder [Unknown]
  - Arthralgia [Unknown]
  - Joint noise [Unknown]
  - Pain in extremity [Unknown]
  - Blood pressure increased [Unknown]
  - Limb mass [Unknown]
  - Somnolence [Unknown]
